FAERS Safety Report 15066851 (Version 3)
Quarter: 2018Q3

REPORT INFORMATION
  Report Type: Report from Study
  Country: US (occurrence: US)
  Receive Date: 20180626
  Receipt Date: 20180829
  Transmission Date: 20181010
  Serious: No
  Sender: FDA-Public Use
  Company Number: PHEH2018US025071

PATIENT
  Sex: Male

DRUGS (1)
  1. ENTRESTO [Suspect]
     Active Substance: SACUBITRIL\VALSARTAN
     Indication: CARDIAC FAILURE CONGESTIVE
     Dosage: UNK UNK, BID
     Route: 048

REACTIONS (5)
  - Headache [Unknown]
  - Peripheral swelling [Not Recovered/Not Resolved]
  - Blood pressure increased [Unknown]
  - Dizziness [Unknown]
  - Malaise [Unknown]
